FAERS Safety Report 8210856-2 (Version None)
Quarter: 2012Q1

REPORT INFORMATION
  Report Type: 
  Country: None (occurrence: None)
  Receive Date: 20120315
  Receipt Date: 20120306
  Transmission Date: 20120608
  Serious: Yes (Hospitalization)
  Sender: FDA-Public Use
  Company Number: 2006BI014836

PATIENT
  Age: 51 Year
  Sex: Female

DRUGS (3)
  1. AVONEX [Suspect]
     Route: 030
     Dates: start: 20030101, end: 20120101
  2. AVONEX [Suspect]
     Indication: MULTIPLE SCLEROSIS
     Route: 030
     Dates: start: 19960503, end: 20030101
  3. PRILOSEC [Concomitant]
     Indication: DYSPEPSIA

REACTIONS (16)
  - MUSCLE SPASMS [None]
  - ANAEMIA [None]
  - FUNGAL SKIN INFECTION [None]
  - CONSTIPATION [None]
  - FATIGUE [None]
  - INFECTION [None]
  - URINARY TRACT INFECTION [None]
  - DEPRESSION [None]
  - INTERVERTEBRAL DISC PROTRUSION [None]
  - COUGH [None]
  - DYSPNOEA [None]
  - PELVIC FRACTURE [None]
  - HYPERTENSION [None]
  - URINARY INCONTINENCE [None]
  - FALL [None]
  - ANXIETY [None]
